FAERS Safety Report 5644734-X (Version None)
Quarter: 2008Q1

REPORT INFORMATION
  Report Type: 
  Country: None (occurrence: None)
  Receive Date: 20080229
  Receipt Date: 20070702
  Transmission Date: 20080703
  Serious: No
  Sender: FDA-Public Use
  Company Number: A0661298A

PATIENT
  Age: 36 Year
  Sex: Male

DRUGS (3)
  1. VALTREX [Suspect]
     Indication: GENITAL HERPES
     Dosage: 1G TWICE PER DAY
     Route: 048
     Dates: start: 20030401
  2. NO CONCURRENT MEDICATION [Concomitant]
  3. L-LYSINE [Concomitant]

REACTIONS (1)
  - HEADACHE [None]
